FAERS Safety Report 6815323-6 (Version None)
Quarter: 2010Q2

REPORT INFORMATION
  Report Type: 
  Country: None (occurrence: None)
  Receive Date: 20100629
  Receipt Date: 20100621
  Transmission Date: 20101027
  Serious: Yes (Hospitalization)
  Sender: FDA-Public Use
  Company Number: 2009-193008-NL

PATIENT
  Age: 68 Year
  Sex: Female

DRUGS (6)
  1. MIRTAZAPINE [Suspect]
     Indication: DEPRESSION
     Dosage: 15 MG;QD;PO, 30MG;QD
     Route: 048
     Dates: start: 20081121
  2. MIRTAZAPINE [Suspect]
     Indication: DEPRESSION
     Dosage: 15 MG;QD;PO, 30MG;QD
     Route: 048
     Dates: start: 20081223
  3. LITHIUM CARBONATE [Suspect]
     Indication: DEPRESSION
     Dosage: 200 MG; BID; PO
     Route: 048
     Dates: start: 19560101
  4. DOXEPIN HYDROCHLORIDE [Suspect]
     Indication: DEPRESSION
     Dosage: 50 MG; BID; PO
     Route: 048
     Dates: end: 19960101
  5. DOXEPIN HYDROCHLORIDE [Suspect]
     Indication: DEPRESSION
     Dosage: 50 MG; BID; PO
     Route: 048
     Dates: start: 20081213
  6. COTRIM [Concomitant]

REACTIONS (11)
  - ALTERED STATE OF CONSCIOUSNESS [None]
  - BLOOD PROLACTIN INCREASED [None]
  - CARDIOVASCULAR DISORDER [None]
  - DEHYDRATION [None]
  - FALL [None]
  - NAUSEA [None]
  - SINUS ARREST [None]
  - SINUS TACHYCARDIA [None]
  - SUPRAVENTRICULAR EXTRASYSTOLES [None]
  - SYNCOPE [None]
  - VENTRICULAR EXTRASYSTOLES [None]
